FAERS Safety Report 6369709-7 (Version None)
Quarter: 2009Q3

REPORT INFORMATION
  Report Type: 
  Country: None (occurrence: None)
  Receive Date: 20090923
  Receipt Date: 20090914
  Transmission Date: 20100115
  Serious: Yes (Other)
  Sender: FDA-Public Use
  Company Number: US-AMGEN-QUU364714

PATIENT
  Sex: Male

DRUGS (1)
  1. ENBREL [Suspect]
     Indication: PSORIASIS
     Route: 058

REACTIONS (8)
  - ANAEMIA [None]
  - BLOOD CHOLESTEROL INCREASED [None]
  - FATIGUE [None]
  - HAEMORRHAGE [None]
  - HYPERKERATOSIS [None]
  - HYPERTENSION [None]
  - INCREASED TENDENCY TO BRUISE [None]
  - WEIGHT INCREASED [None]
